FAERS Safety Report 19077660 (Version 2)
Quarter: 2021Q2

REPORT INFORMATION
  Report Type: Spontaneous
  Country: DE (occurrence: DE)
  Receive Date: 20210331
  Receipt Date: 20210421
  Transmission Date: 20210717
  Serious: Yes (Death, Hospitalization, Other)
  Sender: FDA-Public Use
  Company Number: DE-ROCHE-2791300

PATIENT
  Age: 79 Year
  Sex: Male

DRUGS (2)
  1. BENDAMUSTINE [Suspect]
     Active Substance: BENDAMUSTINE
     Indication: DIFFUSE LARGE B-CELL LYMPHOMA
     Route: 065
     Dates: start: 202004, end: 202007
  2. POLIVY [Suspect]
     Active Substance: POLATUZUMAB VEDOTIN-PIIQ
     Indication: DIFFUSE LARGE B-CELL LYMPHOMA
     Route: 065
     Dates: start: 202004, end: 202007

REACTIONS (6)
  - Autonomic neuropathy [Unknown]
  - Campylobacter infection [Not Recovered/Not Resolved]
  - Death [Fatal]
  - Asthenia [Unknown]
  - Helicobacter infection [Not Recovered/Not Resolved]
  - Polyneuropathy [Unknown]

NARRATIVE: CASE EVENT DATE: 202008
